FAERS Safety Report 10014029 (Version 6)
Quarter: 2015Q1

REPORT INFORMATION
  Report Type: Spontaneous
  Country: IT (occurrence: IT)
  Receive Date: 20140317
  Receipt Date: 20150213
  Transmission Date: 20150720
  Serious: Yes (Other)
  Sender: FDA-Public Use
  Company Number: IT-ROCHE-1365101

PATIENT
  Age: 59 Year
  Sex: Male
  Weight: 75 kg

DRUGS (4)
  1. COPEGUS [Interacting]
     Active Substance: RIBAVIRIN
     Indication: ANTIVIRAL TREATMENT
     Dosage: 6 TABLETS PER DAY
     Route: 048
     Dates: start: 20131018, end: 20131118
  2. COPEGUS [Interacting]
     Active Substance: RIBAVIRIN
     Dosage: 3 TABLETS PER DAY
     Route: 048
     Dates: start: 20131118, end: 20140225
  3. PEGASYS [Suspect]
     Active Substance: PEGINTERFERON ALFA-2A
     Indication: ANTIVIRAL TREATMENT
     Dosage: 1 X 0.5 ML 360 MCG/ML,SOLUTION FOR INJECTION
     Route: 058
     Dates: start: 20131018, end: 20140225
  4. VICTRELIS [Interacting]
     Active Substance: BOCEPREVIR
     Indication: ANTIVIRAL TREATMENT
     Route: 048
     Dates: start: 20131118, end: 20140225

REACTIONS (2)
  - Drug interaction [Unknown]
  - Immunosuppressant drug level increased [Recovered/Resolved]

NARRATIVE: CASE EVENT DATE: 20131127
